APPROVED DRUG PRODUCT: GVS
Active Ingredient: GENTIAN VIOLET
Strength: 0.4%
Dosage Form/Route: SUPPOSITORY;VAGINAL
Application: A083513 | Product #001
Applicant: SAVAGE LABORATORIES INC DIV ALTANA INC
Approved: Approved Prior to Jan 1, 1982 | RLD: No | RS: No | Type: DISCN